FAERS Safety Report 17391900 (Version 1)
Quarter: 2020Q1

REPORT INFORMATION
  Report Type: Spontaneous
  Country: US (occurrence: US)
  Receive Date: 20200207
  Receipt Date: 20200207
  Transmission Date: 20200409
  Serious: No
  Sender: FDA-Public Use
  Company Number: US-BAYER-2020-022733

PATIENT
  Age: 84 Year
  Sex: Male

DRUGS (4)
  1. PYRIDOSTIGMINE [Concomitant]
     Active Substance: PYRIDOSTIGMINE
     Dosage: UNK
  2. BABY ASPIRIN [Concomitant]
     Active Substance: ASPIRIN
     Dosage: UNK
  3. MIRALAX [Suspect]
     Active Substance: POLYETHYLENE GLYCOL 3350
     Indication: GASTROINTESTINAL DISORDER
     Dosage: 17 G
     Route: 048
  4. TRAMADOL. [Concomitant]
     Active Substance: TRAMADOL
     Dosage: UNK

REACTIONS (2)
  - Incorrect product administration duration [Unknown]
  - Prescribed underdose [Unknown]
